FAERS Safety Report 22320783 (Version 2)
Quarter: 2023Q2

REPORT INFORMATION
  Report Type: Report from Study
  Country: US (occurrence: None)
  Receive Date: 20230515
  Receipt Date: 20230623
  Transmission Date: 20230721
  Serious: Yes (Hospitalization)
  Sender: FDA-Public Use
  Company Number: US-ROCHE-3347719

PATIENT
  Age: 34 Year
  Sex: Female

DRUGS (5)
  1. PERTUZUMAB [Suspect]
     Active Substance: PERTUZUMAB
     Indication: Metastases to meninges
     Dosage: 8 DOSES, LAST DOSE ON 28/APR/2023
     Route: 037
     Dates: start: 20230328
  2. TRASTUZUMAB [Suspect]
     Active Substance: TRASTUZUMAB
     Indication: Metastases to meninges
     Dosage: 8 DOSES, LAST DOSE ON 28/APR/2023
     Route: 037
     Dates: start: 20230328
  3. PANTOPRAZOLE [Concomitant]
     Active Substance: PANTOPRAZOLE
     Route: 042
  4. MORPHINE [Concomitant]
     Active Substance: MORPHINE
     Indication: Pain
     Route: 042
  5. ZOFRAN [Concomitant]
     Active Substance: ONDANSETRON HYDROCHLORIDE

REACTIONS (3)
  - Upper gastrointestinal haemorrhage [Recovered/Resolved]
  - Nausea [Recovered/Resolved]
  - Vomiting [Recovered/Resolved]

NARRATIVE: CASE EVENT DATE: 20230508
